FAERS Safety Report 8131536-8 (Version None)
Quarter: 2012Q1

REPORT INFORMATION
  Report Type: 
  Country: None (occurrence: None)
  Receive Date: 20120213
  Receipt Date: 20120201
  Transmission Date: 20120608
  Serious: No
  Sender: FDA-Public Use
  Company Number: US-JNJFOC-20120205513

PATIENT
  Age: 38 Year
  Sex: Female

DRUGS (3)
  1. INVEGA SUSTENNA [Suspect]
     Indication: PRODUCT USED FOR UNKNOWN INDICATION
     Route: 030
  2. GEODON [Concomitant]
     Route: 048
  3. INVEGA [Concomitant]
     Route: 048

REACTIONS (3)
  - HALLUCINATION, AUDITORY [None]
  - PRODUCT QUALITY ISSUE [None]
  - HALLUCINATION [None]
